FAERS Safety Report 12187536 (Version 1)
Quarter: 2016Q1

REPORT INFORMATION
  Report Type: Spontaneous
  Country: US (occurrence: None)
  Receive Date: 20160316
  Receipt Date: 20160316
  Transmission Date: 20160526
  Serious: No
  Sender: FDA-Public Use
  Company Number: None

PATIENT
  Age: 63 Year
  Sex: Male

DRUGS (2)
  1. VELCADE [Suspect]
     Active Substance: BORTEZOMIB
     Indication: PLASMA CELL MYELOMA
     Dates: start: 20130101, end: 20151231
  2. NINLARO [Suspect]
     Active Substance: IXAZOMIB
     Indication: PLASMA CELL MYELOMA
     Dosage: 4MG DOSE FOR 3 WEEKS; 1 WK OFF WEEKLY X 3 WEEKS ORAL
     Route: 048
     Dates: start: 20160101

REACTIONS (2)
  - Drug ineffective [None]
  - Platelet count decreased [None]
